FAERS Safety Report 16310882 (Version 2)
Quarter: 2019Q4

REPORT INFORMATION
  Report Type: Spontaneous
  Country: US (occurrence: US)
  Receive Date: 20190514
  Receipt Date: 20191024
  Transmission Date: 20200122
  Serious: No
  Sender: FDA-Public Use
  Company Number: US-ELI_LILLY_AND_COMPANY-US201905005262

PATIENT
  Age: 49 Year
  Sex: Female
  Weight: 148.75 kg

DRUGS (1)
  1. EMGALITY [Suspect]
     Active Substance: GALCANEZUMAB-GNLM
     Indication: PRODUCT USED FOR UNKNOWN INDICATION
     Dosage: 120 MG, MONTHLY (1/M)
     Route: 058
     Dates: start: 20190326, end: 20190805

REACTIONS (3)
  - Pruritus [Recovered/Resolved]
  - Throat tightness [Recovered/Resolved]
  - Feeling jittery [Unknown]
